FAERS Safety Report 7180224-3 (Version None)
Quarter: 2010Q4

REPORT INFORMATION
  Report Type: 
  Country: None (occurrence: None)
  Receive Date: 20101221
  Receipt Date: 20101210
  Transmission Date: 20110411
  Serious: Yes (Other)
  Sender: FDA-Public Use
  Company Number: US-BAXTER-2010BH029834

PATIENT
  Age: 59 Year
  Sex: Male

DRUGS (2)
  1. BUMINATE 25% [Suspect]
     Indication: CEREBRAL HAEMORRHAGE
     Route: 042
     Dates: start: 20101021, end: 20101021
  2. BUMINATE 25% [Suspect]
     Route: 042
     Dates: start: 20101022, end: 20101022

REACTIONS (1)
  - PULMONARY OEDEMA [None]
